FAERS Safety Report 14888648 (Version 1)
Quarter: 2018Q2

REPORT INFORMATION
  Report Type: Spontaneous
  Country: IL (occurrence: IL)
  Receive Date: 20180513
  Receipt Date: 20180513
  Transmission Date: 20180711
  Serious: Yes (Other)
  Sender: FDA-Public Use
  Company Number: IL-BAXTER-2018BAX013717

PATIENT
  Sex: Female

DRUGS (9)
  1. STERILE WATER FOR INJECTION [Suspect]
     Active Substance: WATER
     Indication: FEEDING DISORDER
     Dosage: PERIPHERAL INFUSION
     Route: 042
  2. 50% DEXTROSE INJECTION USP [Suspect]
     Active Substance: DEXTROSE
     Indication: FEEDING DISORDER
     Dosage: PERIPHERAL INFUSION
     Route: 042
  3. POTASSIUM CHLORIDE. [Suspect]
     Active Substance: POTASSIUM CHLORIDE
     Indication: FEEDING DISORDER
     Dosage: 500ML, PERIPHERAL INFUSION
     Route: 042
  4. PEDITRACE [Suspect]
     Active Substance: CUPRIC CHLORIDE\MANGANESE CHLORIDE\POTASSIUM IODIDE\SODIUM FLUORIDE\SODIUM SELENITE\ZINC CHLORIDE
     Indication: FEEDING DISORDER
     Dosage: PERIPHERAL INFUSION
     Route: 042
  5. MAGNESIUM SULFATE. [Suspect]
     Active Substance: MAGNESIUM SULFATE
     Indication: FEEDING DISORDER
     Dosage: 50% W/V, PERIPHERAL INFUSION
     Route: 042
  6. CALCIUM GLUCONATE. [Suspect]
     Active Substance: CALCIUM GLUCONATE
     Indication: FEEDING DISORDER
     Dosage: 10%W/V, PERIPHERAL INFUSION
     Route: 042
  7. POTASSIUM ACETATE. [Suspect]
     Active Substance: POTASSIUM ACETATE
     Indication: FEEDING DISORDER
     Dosage: PERIPHERAL INFUSION
     Route: 042
  8. PRIM?NE 10% [Suspect]
     Active Substance: AMINO ACIDS
     Indication: FEEDING DISORDER
     Dosage: PERIPHERAL INFUSION
     Route: 042
  9. SODIUM GLYCEROPHOSPHATE [Suspect]
     Active Substance: SODIUM GLYCEROPHOSPHATE
     Indication: FEEDING DISORDER
     Dosage: 21.6% W/V 500ML, PERIPHERAL INFUSION
     Route: 042

REACTIONS (3)
  - Infusion site swelling [Recovered/Resolved]
  - Necrosis [Recovered/Resolved]
  - Infusion site reaction [Recovered/Resolved]

NARRATIVE: CASE EVENT DATE: 20180425
